FAERS Safety Report 6510141-0 (Version None)
Quarter: 2009Q4

REPORT INFORMATION
  Report Type: 
  Country: None (occurrence: None)
  Receive Date: 20091222
  Receipt Date: 20091217
  Transmission Date: 20100525
  Serious: Yes (Other)
  Sender: FDA-Public Use
  Company Number: B0616910A

PATIENT
  Sex: Male

DRUGS (5)
  1. AUGMENTIN '125' [Suspect]
     Dosage: 2G SINGLE DOSE
     Route: 042
     Dates: start: 20091014, end: 20091014
  2. ULTIVA [Suspect]
     Route: 042
     Dates: start: 20091014, end: 20091014
  3. SUPRANE [Suspect]
     Route: 055
     Dates: start: 20091014, end: 20091014
  4. PROPOFOL [Suspect]
     Route: 042
     Dates: start: 20091014, end: 20091014
  5. PERFALGAN [Suspect]
     Dosage: 1G SINGLE DOSE
     Route: 042
     Dates: start: 20091014, end: 20091014

REACTIONS (2)
  - BRONCHOSPASM [None]
  - RASH [None]
